FAERS Safety Report 9417017 (Version 2)
Quarter: 2013Q3

REPORT INFORMATION
  Report Type: Spontaneous
  Country: US (occurrence: None)
  Receive Date: 20130722
  Receipt Date: 20130806
  Transmission Date: 20140515
  Serious: Yes (Hospitalization)
  Sender: FDA-Public Use
  Company Number: 2013P1011777

PATIENT
  Age: 60 Year
  Sex: Female
  Weight: 63.5 kg

DRUGS (1)
  1. HEPARIN SODIUM INJECTION [Suspect]
     Indication: ATRIAL FIBRILLATION
     Route: 042
     Dates: start: 20121003

REACTIONS (20)
  - Drug hypersensitivity [None]
  - Thrombosis [None]
  - Pulmonary thrombosis [None]
  - Thrombosis [None]
  - Pulmonary oedema [None]
  - Abasia [None]
  - Aneurysm [None]
  - Peripheral vascular disorder [None]
  - Heparin-induced thrombocytopenia [None]
  - Pleural effusion [None]
  - Pulmonary thrombosis [None]
  - Respiratory failure [None]
  - Hypotension [None]
  - Sepsis [None]
  - Post procedural stroke [None]
  - Renal failure acute [None]
  - Pneumonia [None]
  - Dry gangrene [None]
  - Liver function test abnormal [None]
  - Acinetobacter infection [None]
